FAERS Safety Report 26126571 (Version 1)
Quarter: 2025Q4

REPORT INFORMATION
  Report Type: Spontaneous
  Country: JP (occurrence: JP)
  Receive Date: 20251205
  Receipt Date: 20251205
  Transmission Date: 20260118
  Serious: Yes (Death, Hospitalization)
  Sender: JOHNSON AND JOHNSON
  Company Number: JP-JNJFOC-20251166867

PATIENT
  Sex: Male

DRUGS (12)
  1. OPSUMIT [Suspect]
     Active Substance: MACITENTAN
     Indication: Pulmonary arterial hypertension
     Route: 048
  2. SARILUMAB(GENETICAL RECOMBINATION) [Concomitant]
     Indication: Rheumatoid arthritis
     Dosage: DOSE UNKNOWN
     Route: 065
  3. GOLIMUMAB(GENETICAL RECOMBINATION) [Concomitant]
     Indication: Rheumatoid arthritis
     Dosage: DOSE UNKNOWN
     Route: 065
  4. UPTRAVI [Concomitant]
     Active Substance: SELEXIPAG
     Indication: Pulmonary arterial hypertension
     Dosage: PER ORAL MEDICINE
  5. UPTRAVI [Concomitant]
     Active Substance: SELEXIPAG
     Dosage: PER ORAL MEDICINE
  6. UPTRAVI [Concomitant]
     Active Substance: SELEXIPAG
     Dosage: PER ORAL MEDICINE
  7. UPTRAVI [Concomitant]
     Active Substance: SELEXIPAG
     Dosage: PER ORAL MEDICINE
  8. UPTRAVI [Concomitant]
     Active Substance: SELEXIPAG
     Dosage: PER ORAL MEDICINE
     Dates: start: 20221124, end: 20251126
  9. UPTRAVI [Concomitant]
     Active Substance: SELEXIPAG
     Dosage: PER ORAL MEDICINE
  10. SILDENAFIL CITRATE [Concomitant]
     Active Substance: SILDENAFIL CITRATE
     Indication: Product used for unknown indication
  11. SILDENAFIL CITRATE [Concomitant]
     Active Substance: SILDENAFIL CITRATE
  12. SILDENAFIL CITRATE [Concomitant]
     Active Substance: SILDENAFIL CITRATE

REACTIONS (4)
  - Pulmonary arterial hypertension [Fatal]
  - Cardiac failure [Unknown]
  - Oxygen saturation decreased [Unknown]
  - Off label use [Unknown]

NARRATIVE: CASE EVENT DATE: 20211202
